FAERS Safety Report 8484588-X (Version None)
Quarter: 2012Q3

REPORT INFORMATION
  Report Type: 
  Country: None (occurrence: None)
  Receive Date: 20120703
  Receipt Date: 20120323
  Transmission Date: 20120928
  Serious: No
  Sender: FDA-Public Use
  Company Number: US-TEVA-329911USA

PATIENT
  Sex: Male
  Weight: 79.45 kg

DRUGS (11)
  1. NUVIGIL [Suspect]
     Route: 048
     Dates: start: 20120224
  2. DONEPEZIL HCL [Concomitant]
  3. PERCOCET [Concomitant]
  4. CYCLOBENZAPRINE [Concomitant]
  5. BUSPIRONE HCL [Concomitant]
  6. LAMOTRIGINE [Concomitant]
  7. LEVOTHYROXINE SODIUM [Concomitant]
  8. SERTRALINE HYDROCHLORIDE [Concomitant]
  9. ATOMOXETINE HCL [Concomitant]
  10. SIMVASTATIN [Concomitant]
  11. VENLAFAXINE [Concomitant]

REACTIONS (4)
  - FEELING JITTERY [None]
  - OFF LABEL USE [None]
  - DRUG EFFECT INCREASED [None]
  - NERVOUSNESS [None]
